FAERS Safety Report 10581420 (Version 1)
Quarter: 2014Q4

REPORT INFORMATION
  Report Type: Spontaneous
  Country: US (occurrence: US)
  Receive Date: 20141113
  Receipt Date: 20141113
  Transmission Date: 20150529
  Serious: No
  Sender: FDA-Public Use
  Company Number: US-ELI_LILLY_AND_COMPANY-US201410010802

PATIENT
  Sex: Male

DRUGS (3)
  1. HUMALOG [Suspect]
     Active Substance: INSULIN LISPRO
     Indication: TYPE 2 DIABETES MELLITUS
     Dosage: 60 U, QD
     Route: 065
     Dates: start: 2002
  2. NOVOLOG [Concomitant]
     Active Substance: INSULIN ASPART
     Route: 065
  3. NOVOLIN [Concomitant]
     Active Substance: INSULIN HUMAN
     Route: 065

REACTIONS (8)
  - Blood glucose increased [Unknown]
  - Underdose [Unknown]
  - Blood glucose decreased [Unknown]
  - Malaise [Unknown]
  - Mental status changes [Unknown]
  - Injection site bruising [Unknown]
  - Somnolence [Unknown]
  - Dizziness [Unknown]
